FAERS Safety Report 13365421 (Version 1)
Quarter: 2017Q1

REPORT INFORMATION
  Report Type: Spontaneous
  Country: US (occurrence: US)
  Receive Date: 20170323
  Receipt Date: 20170323
  Transmission Date: 20170429
  Serious: No
  Sender: FDA-Public Use
  Company Number: US-WARNER CHILCOTT-2016-000396

PATIENT
  Age: 78 Year
  Sex: Female
  Weight: 60.32 kg

DRUGS (3)
  1. ESTRACE [Suspect]
     Active Substance: ESTRADIOL
     Indication: VULVOVAGINAL DRYNESS
     Dosage: TWICE WEEKLY
     Route: 067
     Dates: start: 201601, end: 20160219
  2. ENJUVIA [Suspect]
     Active Substance: ESTROGENS, CONJUGATED SYNTHETIC B
     Indication: HORMONE REPLACEMENT THERAPY
     Dosage: 0.3 MG, UNKNOWN
     Route: 048
     Dates: end: 20160219
  3. ESTRACE [Suspect]
     Active Substance: ESTRADIOL
     Dosage: DAILY FOR ONE WEEK
     Route: 067
     Dates: start: 2016, end: 201601

REACTIONS (3)
  - Drug prescribing error [Unknown]
  - Wrong technique in product usage process [Unknown]
  - Memory impairment [Not Recovered/Not Resolved]

NARRATIVE: CASE EVENT DATE: 2016
